FAERS Safety Report 15379594 (Version 1)
Quarter: 2018Q3

REPORT INFORMATION
  Report Type: Spontaneous
  Country: US (occurrence: US)
  Receive Date: 20180913
  Receipt Date: 20180913
  Transmission Date: 20181010
  Serious: No
  Sender: FDA-Public Use
  Company Number: US-ASTELLAS-2017US049216

PATIENT
  Sex: Male

DRUGS (1)
  1. XTANDI [Suspect]
     Active Substance: ENZALUTAMIDE
     Indication: PROSTATE CANCER
     Dosage: 160 MG, ONCE DAILY (4X40 MG)
     Route: 048
     Dates: start: 201708, end: 201807

REACTIONS (14)
  - Neuropathy peripheral [Unknown]
  - Gait disturbance [Unknown]
  - Peripheral coldness [Unknown]
  - Formication [Unknown]
  - Prostatic specific antigen increased [Unknown]
  - Pain in extremity [Unknown]
  - Rash [Unknown]
  - Fatigue [Unknown]
  - Amnesia [Unknown]
  - Libido decreased [Unknown]
  - Feeling cold [Unknown]
  - Feeling abnormal [Unknown]
  - Asthenia [Unknown]
  - Hot flush [Unknown]
